FAERS Safety Report 19267996 (Version 3)
Quarter: 2021Q3

REPORT INFORMATION
  Report Type: Report from Study
  Country: PA (occurrence: PA)
  Receive Date: 20210518
  Receipt Date: 20210730
  Transmission Date: 20211014
  Serious: Yes (Other)
  Sender: FDA-Public Use
  Company Number: PHHY2015PA055892

PATIENT
  Sex: Female

DRUGS (2)
  1. GILENYA [Suspect]
     Active Substance: FINGOLIMOD HYDROCHLORIDE
     Dosage: UNK
     Route: 065
     Dates: start: 20170713
  2. GILENYA [Suspect]
     Active Substance: FINGOLIMOD HYDROCHLORIDE
     Indication: MULTIPLE SCLEROSIS
     Dosage: 0.5 MG, QD
     Route: 048
     Dates: start: 20150212

REACTIONS (9)
  - Visual impairment [Not Recovered/Not Resolved]
  - Malaise [Unknown]
  - Vision blurred [Not Recovered/Not Resolved]
  - Memory impairment [Not Recovered/Not Resolved]
  - Back pain [Not Recovered/Not Resolved]
  - Nasopharyngitis [Recovered/Resolved]
  - Feeling cold [Recovered/Resolved]
  - Cough [Recovered/Resolved]
  - Eye disorder [Not Recovered/Not Resolved]
